FAERS Safety Report 4575707-6 (Version None)
Quarter: 2005Q1

REPORT INFORMATION
  Report Type: 
  Country: None (occurrence: None)
  Receive Date: 20050209
  Receipt Date: 20050131
  Transmission Date: 20050727
  Serious: Yes (Other)
  Sender: FDA-Public Use
  Company Number: US-JNJFOC-20050200626

PATIENT
  Sex: Female

DRUGS (2)
  1. TYLENOL [Suspect]
     Route: 049
  2. TYLENOL [Suspect]
     Indication: PAIN
     Dosage: UNKNOWN
     Route: 049

REACTIONS (1)
  - HEPATIC FAILURE [None]
